FAERS Safety Report 9011015 (Version 1)
Quarter: 2013Q1

REPORT INFORMATION
  Report Type: Spontaneous
  Country: US (occurrence: US)
  Receive Date: 20130109
  Receipt Date: 20130109
  Transmission Date: 20140127
  Serious: No
  Sender: FDA-Public Use
  Company Number: US-ASTRAZENECA-2013SE00609

PATIENT
  Sex: 0

DRUGS (1)
  1. SYMBICORT PMDI [Suspect]
     Dosage: 160/4.5, FREQUENCY UNKNOWN
     Route: 055
     Dates: start: 2011

REACTIONS (1)
  - Dyspnoea [Unknown]
